FAERS Safety Report 6290549-1 (Version None)
Quarter: 2009Q3

REPORT INFORMATION
  Report Type: 
  Country: None (occurrence: None)
  Receive Date: 20090730
  Receipt Date: 20090720
  Transmission Date: 20100115
  Serious: Yes (Other)
  Sender: FDA-Public Use
  Company Number: US-ROCHE-629499

PATIENT
  Sex: Female
  Weight: 36.7 kg

DRUGS (4)
  1. BONIVA [Suspect]
     Indication: OSTEOPOROSIS
     Route: 048
     Dates: start: 20071217, end: 20081001
  2. LISINOPRIL [Concomitant]
     Indication: HYPERTENSION
     Route: 048
  3. FUROSEMIDE [Concomitant]
     Indication: HYPERTENSION
     Dosage: FREQUENCY: 1 TO 2 TIMES PER WEEK
     Route: 048
  4. ADVAIR DISKUS 100/50 [Concomitant]
     Indication: WHEEZING
     Dosage: DOSE: 250/50, FREQUENCY: DAILY, ROUTE: INHALER
     Route: 055

REACTIONS (2)
  - CARDIAC FAILURE CONGESTIVE [None]
  - DYSPNOEA [None]
